FAERS Safety Report 13893886 (Version 1)
Quarter: 2017Q3

REPORT INFORMATION
  Report Type: Spontaneous
  Country: US (occurrence: US)
  Receive Date: 20170822
  Receipt Date: 20170822
  Transmission Date: 20171127
  Serious: No
  Sender: FDA-Public Use
  Company Number: US-TARO-2017TAR00158

PATIENT
  Age: 90 Year
  Sex: Female

DRUGS (2)
  1. CLOBETASOL [Suspect]
     Active Substance: CLOBETASOL
     Indication: PRURITUS
  2. CLOBETASOL [Suspect]
     Active Substance: CLOBETASOL
     Indication: DRY SKIN
     Dosage: UNK
     Dates: start: 2013

REACTIONS (1)
  - Drug ineffective [Recovered/Resolved]
